FAERS Safety Report 13982977 (Version 1)
Quarter: 2017Q3

REPORT INFORMATION
  Report Type: Spontaneous
  Country: US (occurrence: None)
  Receive Date: 20170918
  Receipt Date: 20170918
  Transmission Date: 20171128
  Serious: No
  Sender: FDA-Public Use
  Company Number: None

PATIENT
  Age: 57 Year
  Sex: Female

DRUGS (1)
  1. GILENYA [Suspect]
     Active Substance: FINGOLIMOD HYDROCHLORIDE

REACTIONS (4)
  - Pain [None]
  - Abdominal pain upper [None]
  - Back pain [None]
  - Constipation [None]

NARRATIVE: CASE EVENT DATE: 20170918
